FAERS Safety Report 16040325 (Version 1)
Quarter: 2019Q1

REPORT INFORMATION
  Report Type: Spontaneous
  Country: US (occurrence: US)
  Receive Date: 20190306
  Receipt Date: 20190306
  Transmission Date: 20190418
  Serious: No
  Sender: FDA-Public Use
  Company Number: US-SHIRE-US201907212

PATIENT
  Sex: Female

DRUGS (1)
  1. GAMMAGARD LIQUID [Suspect]
     Active Substance: HUMAN IMMUNOGLOBULIN G
     Indication: IMMUNODEFICIENCY
     Dosage: 2 GRAM, 1X/DAY:QD
     Route: 058

REACTIONS (7)
  - Drug hypersensitivity [Unknown]
  - Fatigue [Unknown]
  - Depression [Unknown]
  - Myalgia [Unknown]
  - Off label use [Unknown]
  - Headache [Unknown]
  - Malaise [Unknown]
